FAERS Safety Report 19869792 (Version 7)
Quarter: 2024Q1

REPORT INFORMATION
  Report Type: Report from Study
  Country: DE (occurrence: DE)
  Receive Date: 20210922
  Receipt Date: 20240328
  Transmission Date: 20240409
  Serious: Yes (Other)
  Sender: FDA-Public Use
  Company Number: DE-002147023-NVSC2021DE094449

PATIENT
  Sex: Female
  Weight: 58 kg

DRUGS (9)
  1. LETROZOLE [Suspect]
     Active Substance: LETROZOLE
     Indication: Breast cancer metastatic
     Dosage: 2.5 MILLIGRAM, QD
     Route: 048
     Dates: start: 20200729, end: 20240227
  2. KISQALI [Suspect]
     Active Substance: RIBOCICLIB
     Indication: Breast cancer metastatic
     Dosage: 600 MILLIGRAM, QD
     Route: 048
     Dates: start: 20200729, end: 20230119
  3. KISQALI [Suspect]
     Active Substance: RIBOCICLIB
     Dosage: 400MG, QD, REGIMEN 21D INTAKE, 7D PAUSE
     Route: 048
     Dates: start: 20230120, end: 20231016
  4. KISQALI [Suspect]
     Active Substance: RIBOCICLIB
     Dosage: 400MG, QD, REGIMEN 21D INTAKE, 7D PAUSE
     Route: 048
     Dates: start: 20231128, end: 20240227
  5. KISQALI [Suspect]
     Active Substance: RIBOCICLIB
     Dosage: 400MG, QD, REGIMEN 21D INTAKE, 7D PAUSE
     Route: 048
     Dates: start: 20231024, end: 20231120
  6. KISQALI [Suspect]
     Active Substance: RIBOCICLIB
     Dosage: 400MG, QD, REGIMEN 21D INTAKE, 7D PAUSE
     Route: 048
     Dates: start: 20231024, end: 20231120
  7. KISQALI [Suspect]
     Active Substance: RIBOCICLIB
     Dosage: 400MG, QD, REGIMEN 21D INTAKE, 7D PAUSE
     Route: 048
     Dates: start: 20240228
  8. IBUPROFEN [Concomitant]
     Active Substance: IBUPROFEN
     Indication: Limb discomfort
     Dosage: UNK, 200 OR 400 MG PRN
     Route: 048
     Dates: end: 20200904
  9. FULVESTRANT [Concomitant]
     Active Substance: FULVESTRANT
     Indication: Breast cancer metastatic
     Dosage: 500 MILLIGRAM, MONTHLY
     Route: 030
     Dates: start: 20240228

REACTIONS (8)
  - Neutropenia [Not Recovered/Not Resolved]
  - Anaemia [Not Recovered/Not Resolved]
  - COVID-19 [Recovered/Resolved]
  - Pyrexia [Recovered/Resolved]
  - Pruritus [Recovered/Resolved]
  - Pain in extremity [Recovered/Resolved]
  - Non-cardiac chest pain [Not Recovered/Not Resolved]
  - Diarrhoea [Recovered/Resolved]

NARRATIVE: CASE EVENT DATE: 20200801
